FAERS Safety Report 5366050-6 (Version None)
Quarter: 2007Q2

REPORT INFORMATION
  Report Type: 
  Country: None (occurrence: None)
  Receive Date: 20070605
  Receipt Date: 20070319
  Transmission Date: 20071010
  Serious: Yes (Other)
  Sender: FDA-Public Use
  Company Number: SPV1-2007-01395

PATIENT
  Age: 9 Year
  Sex: Female
  Weight: 26.8 kg

DRUGS (3)
  1. DAYTRANA [Suspect]
     Indication: ATTENTION DEFICIT/HYPERACTIVITY DISORDER
     Dosage: 10MG, TRANSDERMAL
     Route: 062
     Dates: start: 20061201, end: 20061219
  2. MELATONIN (MELATONIN) [Concomitant]
  3. DESMOPRESSIN ACETATE (DESMOPRESSIN ACETATE) [Concomitant]

REACTIONS (2)
  - SELF MUTILATION [None]
  - SUICIDAL IDEATION [None]
